FAERS Safety Report 4840311-9 (Version None)
Quarter: 2005Q4

REPORT INFORMATION
  Report Type: 
  Country: None (occurrence: None)
  Receive Date: 20051021
  Receipt Date: 20050829
  Transmission Date: 20060501
  Serious: Yes (Hospitalization)
  Sender: FDA-Public Use
  Company Number: US-JNJFOC-20050806866

PATIENT
  Age: 20 Year
  Sex: Male

DRUGS (5)
  1. RAZADYNE ER [Suspect]
     Indication: AMNESIA
     Dosage: 16 MG, 1 IN 1 DAY, ORAL
     Route: 048
     Dates: start: 20050801
  2. RAZADYNE [Suspect]
     Indication: AMNESIA
     Dosage: 8 MG, 2 IN 1 DAY, ORAL
     Route: 048
     Dates: start: 20030101, end: 20050801
  3. ADVAIR DISKUS 100/50 [Concomitant]
  4. SINGULAIR [Concomitant]
  5. ALBUTEROL (SALBUTAMOL) SPRAY [Concomitant]

REACTIONS (2)
  - ASTHMA [None]
  - BRONCHOSPASM [None]
